FAERS Safety Report 5624843-1 (Version None)
Quarter: 2008Q1

REPORT INFORMATION
  Report Type: 
  Country: None (occurrence: None)
  Receive Date: 20080213
  Receipt Date: 20080206
  Transmission Date: 20080703
  Serious: Yes (Hospitalization)
  Sender: FDA-Public Use
  Company Number: US-JNJFOC-20080201747

PATIENT
  Sex: Female

DRUGS (1)
  1. DOXIL [Suspect]
     Indication: OVARIAN CANCER
     Dosage: 7TH CYCLE
     Route: 041

REACTIONS (3)
  - CELLULITIS [None]
  - EYE SWELLING [None]
  - OEDEMA PERIPHERAL [None]
